FAERS Safety Report 4747962-0 (Version None)
Quarter: 2005Q3

REPORT INFORMATION
  Report Type: 
  Country: None (occurrence: None)
  Receive Date: 20050817
  Receipt Date: 20050804
  Transmission Date: 20060218
  Serious: Yes (Death)
  Sender: FDA-Public Use
  Company Number: 2005-DE-03050GD

PATIENT

DRUGS (7)
  1. MORPHINE [Suspect]
     Indication: EPIDURAL ANAESTHESIA
     Dosage: 2 - 4 MG (NR, BOLUS DOSE),  ED
  2. MEPIVACAINE HCL [Suspect]
     Indication: EPIDURAL ANAESTHESIA
     Dosage: 4 - 6 ML (STRENGTH:  20 MG/ML), FOLLOWED BY 5 - 8 ML/H (SEE TEXT), ED
  3. OXYGEN (OXYGEN) [Suspect]
     Indication: GENERAL ANAESTHESIA
     Dosage: IH
     Route: 055
  4. NITROUS OXIDE (NITROUS OXIDE) [Suspect]
     Indication: GENERAL ANAESTHESIA
     Dosage: IH
     Route: 055
  5. VOLATILE ANESTHETIC AGENT (ANAESTHETICS, GENERAL) [Suspect]
     Indication: GENERAL ANAESTHESIA
     Dosage: IH
     Route: 055
  6. FENTANYL [Suspect]
     Indication: GENERAL ANAESTHESIA
     Dosage: INCREMENTAL DOSES, NR
  7. NON-DEPOLARIZING MUSCLE RELAXANT (MUSCLE RELAXANTS) [Suspect]
     Indication: GENERAL ANAESTHESIA

REACTIONS (2)
  - OPERATIVE HAEMORRHAGE [None]
  - THORACIC HAEMORRHAGE [None]
